FAERS Safety Report 6427517-2 (Version None)
Quarter: 2009Q4

REPORT INFORMATION
  Report Type: 
  Country: None (occurrence: None)
  Receive Date: 20091104
  Receipt Date: 20091026
  Transmission Date: 20100525
  Serious: Yes (Other)
  Sender: FDA-Public Use
  Company Number: PHHY2009JP45464

PATIENT
  Age: 15 Year
  Sex: Female

DRUGS (8)
  1. CYCLOSPORINE [Suspect]
     Indication: NEPHROTIC SYNDROME
     Route: 048
  2. CYCLOSPORINE [Suspect]
     Dosage: 0.75 MG/KG, ONCE DAILY
     Route: 048
  3. MYCOPHENOLATE MOFETIL [Concomitant]
     Indication: NEPHROTIC SYNDROME
     Dosage: UNK
  4. PREDNISOLONE [Concomitant]
     Indication: NEPHROTIC SYNDROME
  5. VALSARTAN [Concomitant]
  6. DILAZEP HYDROCHLORIDE [Concomitant]
  7. AMLODIPINE [Concomitant]
  8. ALFACALCIDOL [Concomitant]
     Dosage: UNK

REACTIONS (5)
  - FOCAL SEGMENTAL GLOMERULOSCLEROSIS [None]
  - HEADACHE [None]
  - HYPERTENSION [None]
  - IMMUNOSUPPRESSANT DRUG LEVEL INCREASED [None]
  - NEPHROPATHY TOXIC [None]
